FAERS Safety Report 10052113 (Version 3)
Quarter: 2014Q2

REPORT INFORMATION
  Report Type: Spontaneous
  Country: DE (occurrence: DE)
  Receive Date: 20140402
  Receipt Date: 20140627
  Transmission Date: 20141212
  Serious: Yes (Hospitalization)
  Sender: FDA-Public Use
  Company Number: DE-AMGEN-DEUSP2014021344

PATIENT
  Sex: Female

DRUGS (18)
  1. NEULASTA [Suspect]
     Indication: B-CELL LYMPHOMA
     Dosage: (6 MG, 1 IN 14 D) 1 TIMES IN 14 DAY(S) FOR 1 DAY
     Route: 058
     Dates: start: 20140311, end: 20140311
  2. RITUXIMAB [Suspect]
     Indication: B-CELL LYMPHOMA
     Dosage: 375 MG/M2, DAY 4,-1,1,4 FOR 8 DAY
     Route: 042
     Dates: start: 20140228, end: 20140307
  3. CYCLOPHOSPHAMIDE [Suspect]
     Indication: B-CELL LYMPHOMA
     Dosage: 750 MG/M2, 1 TIMES IN 14 DAY(S) FOR 1 DAY(S)
     Route: 042
     Dates: start: 20140305, end: 20140305
  4. DOXORUBICIN [Suspect]
     Indication: B-CELL LYMPHOMA
     Dosage: 50 MG/M2, 1 TIMES IN 14 DAYS FOR 1 DAY
     Route: 042
     Dates: start: 20140305, end: 20140305
  5. VINCRISTINE [Suspect]
     Indication: B-CELL LYMPHOMA
     Dosage: 3.06 MG, 1 TIMES IN 14 DAY(S) FOR 1 DAY(S)
     Route: 042
     Dates: start: 20140305, end: 20140305
  6. PREDNISONE [Suspect]
     Indication: B-CELL LYMPHOMA
     Dosage: 1 TIME A DAY FOR 5 DAYS (100 MG, 1 IN 1 D)
     Route: 065
     Dates: start: 20140305, end: 20140309
  7. VALSARTAN [Concomitant]
     Indication: PROPHYLAXIS
     Dosage: 160 MG, 1 TIMES A DAY(S)
     Route: 048
     Dates: start: 20140312
  8. HYDROCHLOROTHIAZIDE [Concomitant]
     Indication: PROPHYLAXIS
     Dosage: 25 MG, 1 TIMES A DAY(S)
     Route: 048
     Dates: start: 20140312
  9. IBANDRONIC ACID [Concomitant]
     Indication: OSTEOPOROSIS
     Dosage: 150 MG, 1 TIMES A DAY(S)
     Route: 042
     Dates: start: 20140312
  10. PANTOPRAZOL [Concomitant]
     Indication: GASTROOESOPHAGEAL REFLUX DISEASE
     Dosage: 40 MG, 1 TIMES A DAY(S)
     Route: 048
     Dates: start: 20140312
  11. ALLOPURINOL [Concomitant]
     Indication: PROPHYLAXIS
     Dosage: 300 MG, 1 TIMES A DAY(S)
     Route: 048
     Dates: start: 20140312
  12. COLECALCIFEROL [Concomitant]
     Indication: VITAMIN SUPPLEMENTATION
     Dosage: 2000 IU, 1 TIMES A DAY(S)
     Route: 048
     Dates: start: 20140312
  13. TRIMETHOPRIM SULFAMETHOXAZOLE [Concomitant]
     Indication: INFECTION PROPHYLAXIS
     Dosage: 960 MG, 3 TIMES/WK
     Route: 048
     Dates: start: 20140312
  14. KALIUM                             /00031401/ [Concomitant]
     Indication: BLOOD POTASSIUM DECREASED
     Dosage: UNK UNK, TWICE DAILY, 1 CAPSULE
     Route: 048
     Dates: start: 20140312
  15. METAMIZOLE SODIUM [Concomitant]
     Indication: PAIN
     Dosage: 40 G, THREE TIMES A DAY
     Route: 048
     Dates: start: 20140312
  16. CIPROFLOXACIN [Concomitant]
     Indication: INFECTION PROPHYLAXIS
     Dosage: 500 MG, 2 TIMES A DAY
     Route: 048
     Dates: start: 20140312
  17. AMPHOTERICIN B [Concomitant]
     Indication: INFECTION PROPHYLAXIS
     Dosage: 4X1/4 BOTTLE , DAILY
     Route: 048
     Dates: start: 20140312
  18. ONDANSETRON [Concomitant]
     Indication: PROPHYLAXIS OF NAUSEA AND VOMITING
     Dosage: 8 MG, 2 TIMES A DAY
     Route: 048
     Dates: start: 20140312

REACTIONS (4)
  - Hypertensive crisis [Recovered/Resolved]
  - Hyponatraemia [Recovered/Resolved]
  - Vomiting [Recovered/Resolved]
  - Nausea [Recovered/Resolved]
